FAERS Safety Report 12606025 (Version 21)
Quarter: 2022Q4

REPORT INFORMATION
  Report Type: Spontaneous
  Country: US (occurrence: US)
  Receive Date: 20160729
  Receipt Date: 20221118
  Transmission Date: 20230113
  Serious: Yes (Hospitalization, Other)
  Sender: FDA-Public Use
  Company Number: US-PFIZER INC-2016332106

PATIENT
  Age: 76 Year
  Sex: Female
  Weight: 63 kg

DRUGS (6)
  1. XELJANZ XR [Suspect]
     Active Substance: TOFACITINIB CITRATE
     Indication: Rheumatoid arthritis
     Dosage: 11 MG, 1X/DAY
     Route: 048
  2. XELJANZ XR [Suspect]
     Active Substance: TOFACITINIB CITRATE
     Dosage: 11 MG, 1X/DAY
     Route: 048
  3. XELJANZ XR [Suspect]
     Active Substance: TOFACITINIB CITRATE
     Dosage: 11 MG, 1X/DAY
     Route: 048
     Dates: start: 2015, end: 2016
  4. XELJANZ XR [Suspect]
     Active Substance: TOFACITINIB CITRATE
     Dosage: 11 MG, 1X/DAY
     Route: 048
     Dates: start: 2016
  5. XELJANZ XR [Suspect]
     Active Substance: TOFACITINIB CITRATE
     Dosage: 11 MG, 1X/DAY
     Route: 048
     Dates: end: 20171104
  6. XELJANZ XR [Suspect]
     Active Substance: TOFACITINIB CITRATE
     Dosage: 11 MG, 1X/DAY
     Route: 048
     Dates: end: 201901

REACTIONS (18)
  - Respiratory tract congestion [Recovered/Resolved]
  - Kidney infection [Unknown]
  - Sinusitis [Not Recovered/Not Resolved]
  - Intentional dose omission [Unknown]
  - Nasopharyngitis [Recovered/Resolved]
  - Infection [Recovered/Resolved]
  - Rhinorrhoea [Recovered/Resolved]
  - Malaise [Recovered/Resolved]
  - Dysuria [Unknown]
  - Dysphonia [Unknown]
  - Productive cough [Unknown]
  - Influenza [Recovered/Resolved]
  - Herpes zoster [Recovering/Resolving]
  - Enzyme level increased [Unknown]
  - Anxiety [Recovered/Resolved]
  - Road traffic accident [Unknown]
  - Illness [Recovered/Resolved]
  - Treatment noncompliance [Unknown]

NARRATIVE: CASE EVENT DATE: 20160101
